FAERS Safety Report 15209618 (Version 2)
Quarter: 2018Q4

REPORT INFORMATION
  Report Type: Spontaneous
  Country: GB (occurrence: GB)
  Receive Date: 20180727
  Receipt Date: 20181107
  Transmission Date: 20190204
  Serious: Yes (Other)
  Sender: FDA-Public Use
  Company Number: GB-TEVA-2018-GB-931287

PATIENT
  Age: 27 Year
  Sex: Female
  Weight: 64 kg

DRUGS (11)
  1. ALPHOSYL [Concomitant]
     Dosage: 1 DOSAGE FORMS DAILY; USE ONCE DAILY FOR A WEEK TO WASH OUT SEBCO
     Dates: start: 20180627
  2. CLOBETASONE BUTYRATE [Concomitant]
     Active Substance: CLOBETASONE BUTYRATE
     Indication: PRURITUS
     Dosage: 1 DOSAGE FORMS DAILY; TO ITCHY AREAS
     Dates: start: 20180627
  3. NITROFURANTOIN. [Suspect]
     Active Substance: NITROFURANTOIN
     Indication: URINARY TRACT INFECTION
     Dosage: 200 MILLIGRAM DAILY;
     Route: 065
     Dates: start: 20180627
  4. NITROFURANTOIN. [Suspect]
     Active Substance: NITROFURANTOIN
     Dates: start: 20180528, end: 20180531
  5. BETNOVATE [Concomitant]
     Active Substance: BETAMETHASONE
     Dosage: 2 DOSAGE FORMS DAILY;
     Dates: start: 20180614
  6. PIVMECILLINAM [Concomitant]
     Active Substance: AMDINOCILLIN PIVOXIL
     Indication: URINARY TRACT INFECTION
     Dates: start: 20180531, end: 20180603
  7. LAMOTRIGINE. [Concomitant]
     Active Substance: LAMOTRIGINE
     Dosage: 2 DOSAGE FORMS DAILY;
     Dates: start: 20160907
  8. KETOCONAZOLE. [Concomitant]
     Active Substance: KETOCONAZOLE
     Dates: start: 20180531, end: 20180601
  9. ELIDEL [Concomitant]
     Active Substance: PIMECROLIMUS
     Indication: PRURITUS
     Dosage: 1 DOSAGE FORMS DAILY;
     Route: 061
     Dates: start: 20180627
  10. SILKIS [Concomitant]
     Active Substance: CALCITRIOL
     Dosage: 1 DOSAGE FORMS DAILY; TO BODY PATCHES
     Dates: start: 20180627
  11. SEBCO [Concomitant]
     Dosage: APPLY AND LEAVE IN OVERNIGHT.
     Dates: start: 20180627

REACTIONS (1)
  - Psoriasis [Recovering/Resolving]

NARRATIVE: CASE EVENT DATE: 20180627
